FAERS Safety Report 25362451 (Version 1)
Quarter: 2025Q2

REPORT INFORMATION
  Report Type: Spontaneous
  Country: US (occurrence: US)
  Receive Date: 20250527
  Receipt Date: 20250527
  Transmission Date: 20250717
  Serious: Yes (Hospitalization)
  Sender: MYLAN
  Company Number: US-MYLANLABS-2025M1042560

PATIENT
  Sex: Male

DRUGS (8)
  1. METHADONE [Suspect]
     Active Substance: METHADONE HYDROCHLORIDE
     Indication: Pain
     Dosage: 175 MILLIGRAM, QD
  2. METHADONE [Suspect]
     Active Substance: METHADONE HYDROCHLORIDE
     Dosage: 175 MILLIGRAM, QD
     Route: 065
  3. METHADONE [Suspect]
     Active Substance: METHADONE HYDROCHLORIDE
     Dosage: 175 MILLIGRAM, QD
     Route: 065
  4. METHADONE [Suspect]
     Active Substance: METHADONE HYDROCHLORIDE
     Dosage: 175 MILLIGRAM, QD
  5. PREDNISONE [Suspect]
     Active Substance: PREDNISONE
     Indication: Product used for unknown indication
     Dosage: UNK, QD, DOSE RANGING FROM 5 TO 60 MG DAILY OVER THE LAST 20-YEARS
  6. PREDNISONE [Suspect]
     Active Substance: PREDNISONE
     Dosage: UNK, QD, DOSE RANGING FROM 5 TO 60 MG DAILY OVER THE LAST 20-YEARS
     Route: 065
  7. PREDNISONE [Suspect]
     Active Substance: PREDNISONE
     Dosage: UNK, QD, DOSE RANGING FROM 5 TO 60 MG DAILY OVER THE LAST 20-YEARS
     Route: 065
  8. PREDNISONE [Suspect]
     Active Substance: PREDNISONE
     Dosage: UNK, QD, DOSE RANGING FROM 5 TO 60 MG DAILY OVER THE LAST 20-YEARS

REACTIONS (2)
  - Hyperinsulinaemic hypoglycaemia [Recovered/Resolved]
  - Treatment noncompliance [Unknown]
